FAERS Safety Report 11889106 (Version 1)
Quarter: 2016Q1

REPORT INFORMATION
  Report Type: Spontaneous
  Country: US (occurrence: None)
  Receive Date: 20160104
  Receipt Date: 20160104
  Transmission Date: 20160526
  Serious: Yes (Hospitalization)
  Sender: FDA-Public Use
  Company Number: None

PATIENT
  Age: 51 Year
  Sex: Female
  Weight: 71.22 kg

DRUGS (2)
  1. VITAMIN B12 [Concomitant]
     Active Substance: CYANOCOBALAMIN
  2. MIRAPEX [Suspect]
     Active Substance: PRAMIPEXOLE DIHYDROCHLORIDE
     Indication: RESTLESS LEGS SYNDROME
     Dosage: 1 PILL
     Route: 048

REACTIONS (9)
  - Personality change [None]
  - Hypotension [None]
  - Loss of consciousness [None]
  - Chest pain [None]
  - Iron deficiency [None]
  - Obsessive-compulsive disorder [None]
  - Cough [None]
  - Gambling disorder [None]
  - Productive cough [None]
